FAERS Safety Report 15804293 (Version 1)
Quarter: 2019Q1

REPORT INFORMATION
  Report Type: Spontaneous
  Country: US (occurrence: US)
  Receive Date: 20190109
  Receipt Date: 20190109
  Transmission Date: 20190417
  Serious: Yes (Hospitalization, Other)
  Sender: FDA-Public Use
  Company Number: US-FRESENIUS MEDICAL CARE RENAL THERAPIES GROUP-FMC-1901-000030

PATIENT
  Age: 65 Year
  Sex: Female
  Weight: 64.5 kg

DRUGS (12)
  1. BIFIDOBACTERIUM INFANTIS [Concomitant]
  2. NIFEDIPINE. [Concomitant]
     Active Substance: NIFEDIPINE
  3. INSULIN [Concomitant]
     Active Substance: INSULIN NOS
  4. PANTOPRAZOLE [Concomitant]
     Active Substance: PANTOPRAZOLE
  5. FUROSEMIDE. [Concomitant]
     Active Substance: FUROSEMIDE
  6. LISINOPRIL. [Concomitant]
     Active Substance: LISINOPRIL
  7. CLONIDINE. [Concomitant]
     Active Substance: CLONIDINE
  8. ASPRIN [Concomitant]
     Active Substance: ASPIRIN
  9. DOXAZOSIN MESYLATE. [Concomitant]
     Active Substance: DOXAZOSIN MESYLATE
  10. METOPROLOL. [Concomitant]
     Active Substance: METOPROLOL
  11. ATORVASTATIN [Concomitant]
     Active Substance: ATORVASTATIN
  12. DELFLEX [Suspect]
     Active Substance: CALCIUM CHLORIDE\DEXTROSE\MAGNESIUM CHLORIDE\SODIUM CHLORIDE\SODIUM LACTATE
     Indication: END STAGE RENAL DISEASE
     Dosage: FIVE CYCLES OF 2000 ML PLUS A DAY TIME EXCHANGE OF 2000 ML FOR A TOTAL DAILY VOLUME OF 12000 ML
     Route: 033
     Dates: end: 20180607

REACTIONS (4)
  - Pulmonary oedema [Unknown]
  - Sepsis [Recovered/Resolved]
  - Peritonitis [Recovered/Resolved]
  - Cardiac failure congestive [Unknown]

NARRATIVE: CASE EVENT DATE: 20181227
